FAERS Safety Report 12737061 (Version 2)
Quarter: 2016Q4

REPORT INFORMATION
  Report Type: Spontaneous
  Country: US (occurrence: US)
  Receive Date: 20160912
  Receipt Date: 20161202
  Transmission Date: 20170207
  Serious: Yes (Hospitalization, Other)
  Sender: FDA-Public Use
  Company Number: US-SIGMAPHARM LABORATORIES, LLC-2016SIG00033

PATIENT
  Age: 61 Year
  Sex: Female
  Weight: 68.27 kg

DRUGS (4)
  1. LEVOTHYROXINE. [Concomitant]
     Active Substance: LEVOTHYROXINE
     Indication: HYPOTHYROIDISM
     Dosage: 1 DOSAGE UNITS, 1X/DAY
     Route: 048
  2. ACITRETIN. [Suspect]
     Active Substance: ACITRETIN
     Dosage: 25 MG, 3X/WEEK
     Route: 048
     Dates: start: 201606, end: 201607
  3. ACITRETIN. [Suspect]
     Active Substance: ACITRETIN
     Indication: PSORIASIS
     Dosage: 25 MG, 1X/DAY
     Route: 048
     Dates: start: 201606, end: 201606
  4. HUMALOG [Concomitant]
     Active Substance: INSULIN LISPRO
     Indication: DIABETES MELLITUS
     Dosage: VIA PUMP

REACTIONS (11)
  - Hyponatraemia [Recovered/Resolved]
  - Blood glucose increased [Recovering/Resolving]
  - Anion gap increased [Recovered/Resolved]
  - Depressed mood [Unknown]
  - Nausea [None]
  - Urine ketone body present [Unknown]
  - Blood glucose decreased [Unknown]
  - Acute kidney injury [Recovered/Resolved]
  - Hypovolaemia [Recovered/Resolved]
  - Skin exfoliation [Recovering/Resolving]
  - Feeling abnormal [Unknown]

NARRATIVE: CASE EVENT DATE: 201606
